FAERS Safety Report 5380366-9 (Version None)
Quarter: 2007Q3

REPORT INFORMATION
  Report Type: 
  Country: None (occurrence: None)
  Receive Date: 20070706
  Receipt Date: 20070522
  Transmission Date: 20080115
  Serious: No
  Sender: FDA-Public Use
  Company Number: A0652365A

PATIENT
  Age: 63 Year
  Sex: Female

DRUGS (9)
  1. TYKERB [Suspect]
     Indication: BREAST CANCER
     Dosage: 3TAB PER DAY
     Route: 048
     Dates: start: 20070412
  2. HERCEPTIN [Concomitant]
  3. DILANTIN [Concomitant]
  4. DECADRON [Concomitant]
  5. CATAPRES [Concomitant]
  6. KEPPRA [Concomitant]
  7. PAXIL [Concomitant]
  8. K-DUR 10 [Concomitant]
  9. MICROBID [Concomitant]

REACTIONS (2)
  - DIARRHOEA [None]
  - INFREQUENT BOWEL MOVEMENTS [None]
